FAERS Safety Report 4439913-3 (Version None)
Quarter: 2004Q3

REPORT INFORMATION
  Report Type: 
  Country: None (occurrence: None)
  Receive Date: 20040831
  Receipt Date: 20040817
  Transmission Date: 20050211
  Serious: Yes (Disabling)
  Sender: FDA-Public Use
  Company Number: 200407614

PATIENT
  Age: 56 Year
  Sex: Female

DRUGS (1)
  1. BOTOX [Suspect]
     Indication: HEADACHE
     Dosage: 100 UNITS ONCE SC
     Route: 058
     Dates: start: 20030505, end: 20030505

REACTIONS (7)
  - EYE DISORDER [None]
  - EYE PAIN [None]
  - EYELID OEDEMA [None]
  - HEADACHE [None]
  - SKIN WRINKLING [None]
  - VISION BLURRED [None]
  - VISUAL DISTURBANCE [None]
